FAERS Safety Report 8448958-8 (Version None)
Quarter: 2012Q2

REPORT INFORMATION
  Report Type: 
  Country: None (occurrence: None)
  Receive Date: 20120613
  Receipt Date: 20120531
  Transmission Date: 20120825
  Serious: Yes (Hospitalization)
  Sender: FDA-Public Use
  Company Number: DSJ-2012-07254

PATIENT
  Age: 5 Decade
  Sex: Female

DRUGS (2)
  1. HORMONE FOR MYOMAS (HORMONES NOS) [Concomitant]
  2. BENICAR HCT [Suspect]
     Indication: HYPERTENSION
     Dosage: 20/12.5 MG (1 IN 1 D), PER ORAL;
     Route: 048
     Dates: start: 20110501

REACTIONS (5)
  - HYSTERECTOMY [None]
  - HEADACHE [None]
  - UTERINE HAEMORRHAGE [None]
  - TREATMENT NONCOMPLIANCE [None]
  - DRUG ADMINISTRATION ERROR [None]
